FAERS Safety Report 5528510-4 (Version None)
Quarter: 2007Q4

REPORT INFORMATION
  Report Type: 
  Country: None (occurrence: None)
  Receive Date: 20071123
  Receipt Date: 20071107
  Transmission Date: 20080405
  Serious: Yes (Hospitalization, Congenital Anomaly)
  Sender: FDA-Public Use
  Company Number: 8016180

PATIENT
  Age: 25 Year
  Sex: Female
  Weight: 58 kg

DRUGS (11)
  1. KEPPRA [Suspect]
     Indication: EPILEPSY
     Dosage: 3000 MG /D PO
     Route: 048
     Dates: start: 20050701
  2. TRILEPTAL [Suspect]
     Indication: EPILEPSY
     Dosage: 1800 MG /D PO
     Route: 048
     Dates: start: 20040101, end: 20060101
  3. TRILEPTAL [Suspect]
     Indication: EPILEPSY
     Dosage: 2400 MG /D PO
     Route: 048
     Dates: start: 20060101
  4. PLAQUENIL [Suspect]
     Indication: SYSTEMIC LUPUS ERYTHEMATOSUS
     Dosage: 200 MG /D PO
     Route: 048
     Dates: start: 20000201
  5. PARACETAMOL [Suspect]
     Indication: SYSTEMIC LUPUS ERYTHEMATOSUS
     Dosage: PO
     Route: 048
     Dates: start: 20040101
  6. PREDNISONE TAB [Concomitant]
  7. ACTONEL [Concomitant]
  8. OROCAL D (3) [Concomitant]
  9. DIFFU K [Concomitant]
  10. SPECIAFOLDINE [Concomitant]
  11. POTASSIUM CHLORIDE [Concomitant]

REACTIONS (6)
  - CAESAREAN SECTION [None]
  - CONDITION AGGRAVATED [None]
  - DRUG EXPOSURE DURING PREGNANCY [None]
  - EPILEPSY [None]
  - PLACENTAL DISORDER [None]
  - PREGNANCY [None]
